FAERS Safety Report 4943916-X (Version None)
Quarter: 2006Q1

REPORT INFORMATION
  Report Type: 
  Country: None (occurrence: None)
  Receive Date: 20060313
  Receipt Date: 20060313
  Transmission Date: 20060701
  Serious: Yes (Life-Threatening)
  Sender: FDA-Public Use
  Company Number: None

PATIENT
  Age: 53 Year
  Sex: Male
  Weight: 103.8737 kg

DRUGS (5)
  1. ANCEF [Suspect]
     Indication: PROPHYLAXIS
     Dosage: 1000 MG X 2
     Dates: start: 20051220
  2. ANCEF [Suspect]
     Indication: SURGERY
     Dosage: 1000 MG X 2
     Dates: start: 20051220
  3. ZEMURON (ROCURONIUM) 50 MG [Suspect]
  4. BREVIBLOC [Suspect]
     Indication: BLOOD PRESSURE INCREASED
     Dosage: 10 MG X 2 DOSES
     Dates: start: 20051220
  5. DIPROVAN (PROPOFOL) 200 MG [Suspect]

REACTIONS (6)
  - BLOOD PRESSURE INCREASED [None]
  - BRADYCARDIA [None]
  - FLUSHING [None]
  - HYPERHIDROSIS [None]
  - HYPOTENSION [None]
  - THERAPY NON-RESPONDER [None]
